FAERS Safety Report 23268656 (Version 2)
Quarter: 2024Q3

REPORT INFORMATION
  Report Type: Spontaneous
  Country: US (occurrence: US)
  Receive Date: 20231206
  Receipt Date: 20240801
  Transmission Date: 20241016
  Serious: No
  Sender: PFIZER
  Company Number: US-PFIZER INC-PV202300194067

PATIENT
  Age: 64 Year
  Sex: Female

DRUGS (1)
  1. XELJANZ XR [Suspect]
     Active Substance: TOFACITINIB CITRATE

REACTIONS (7)
  - Fatigue [Unknown]
  - Product dose omission in error [Unknown]
  - Upper respiratory tract infection [Unknown]
  - Toothache [Unknown]
  - Oral disorder [Unknown]
  - Hypersensitivity [Unknown]
  - Illness [Unknown]
